FAERS Safety Report 11630721 (Version 3)
Quarter: 2015Q4

REPORT INFORMATION
  Report Type: Report from Study
  Country: DE (occurrence: DE)
  Receive Date: 20151014
  Receipt Date: 20151021
  Transmission Date: 20160304
  Serious: Yes (Other)
  Sender: FDA-Public Use
  Company Number: DE-BAYER-2015-441567

PATIENT

DRUGS (10)
  1. SIMVAHEXAL [Concomitant]
     Active Substance: SIMVASTATIN
     Dosage: 40 MG, QD
  2. CANDESARTAN [Concomitant]
     Active Substance: CANDESARTAN
     Dosage: 10 MG, QD
  3. XARELTO [Suspect]
     Active Substance: RIVAROXABAN
  4. HYDROCHLOROTHIAZID [Concomitant]
     Active Substance: HYDROCHLOROTHIAZIDE
     Dosage: 25 MG, QD
  5. LANTUS [Concomitant]
     Active Substance: INSULIN GLARGINE
     Dosage: 36 IU, QD
  6. METFORMIN [Concomitant]
     Active Substance: METFORMIN HYDROCHLORIDE
     Dosage: 850 MG, BID
  7. LIPROLOG [Concomitant]
     Active Substance: INSULIN LISPRO
     Dosage: UNK
  8. ASPIRIN PROTECT 100 [Suspect]
     Active Substance: ASPIRIN
     Dosage: 100 MG, QD
     Dates: end: 20150605
  9. BISOHEXAL [Concomitant]
     Active Substance: BISOPROLOL FUMARATE
     Dosage: 5 MG, QD
  10. ALLOPURINOL RATIOPHARM [Concomitant]
     Dosage: 100 MG, QD

REACTIONS (2)
  - Ischaemic cerebral infarction [None]
  - Ischaemic cerebral infarction [None]

NARRATIVE: CASE EVENT DATE: 20150611
